FAERS Safety Report 8529986-0 (Version None)
Quarter: 2012Q3

REPORT INFORMATION
  Report Type: 
  Country: None (occurrence: None)
  Receive Date: 20120723
  Receipt Date: 20110818
  Transmission Date: 20120928
  Serious: No
  Sender: FDA-Public Use
  Company Number: US-GLAXOSMITHKLINE-A0941550A

PATIENT
  Age: 84 Year
  Sex: Female

DRUGS (3)
  1. TRIAMTERENE AND HYDROCHLOROTHIAZIDE [Suspect]
     Indication: FLUID RETENTION
     Dosage: 1CAP PER DAY
     Route: 048
     Dates: start: 20101001, end: 20101101
  2. SINUS MEDICATION [Concomitant]
  3. POTASSIUM CHLORIDE [Concomitant]

REACTIONS (4)
  - WEIGHT DECREASED [None]
  - INSOMNIA [None]
  - POLLAKIURIA [None]
  - DECREASED APPETITE [None]
